FAERS Safety Report 13288381 (Version 1)
Quarter: 2017Q1

REPORT INFORMATION
  Report Type: Report from Study
  Country: CO (occurrence: CO)
  Receive Date: 20170302
  Receipt Date: 20170302
  Transmission Date: 20170428
  Serious: Yes (Other)
  Sender: FDA-Public Use
  Company Number: CO-NOVOPROD-533207

PATIENT
  Age: 36 Year
  Sex: Female
  Weight: 109 kg

DRUGS (3)
  1. VICTOZA [Suspect]
     Active Substance: LIRAGLUTIDE
     Indication: TYPE 2 DIABETES MELLITUS
     Dosage: 0.6 ML
     Route: 058
     Dates: start: 20170217, end: 20170219
  2. CEPHRADINE [Concomitant]
     Active Substance: CEPHRADINE
     Dosage: 500 MG, QD
     Route: 048
  3. PARACETAMOL CODEINE [Concomitant]
     Active Substance: ACETAMINOPHEN\CODEINE PHOSPHATE
     Indication: PAIN MANAGEMENT
     Dosage: 325/3 MG ACCORDING TO PATIENT^S NEEDS
     Route: 048

REACTIONS (8)
  - Dizziness [Not Recovered/Not Resolved]
  - Gastrooesophageal reflux disease [Not Recovered/Not Resolved]
  - Overdose [Unknown]
  - Nausea [Not Recovered/Not Resolved]
  - Drug administered in wrong device [Unknown]
  - Vomiting [Not Recovered/Not Resolved]
  - Fall [Not Recovered/Not Resolved]
  - Decreased appetite [Not Recovered/Not Resolved]

NARRATIVE: CASE EVENT DATE: 20170217
